FAERS Safety Report 24676015 (Version 3)
Quarter: 2024Q4

REPORT INFORMATION
  Report Type: Spontaneous
  Country: CN (occurrence: CN)
  Receive Date: 20241128
  Receipt Date: 20241217
  Transmission Date: 20250115
  Serious: No
  Sender: MERCK
  Company Number: CN-009507513-2411CHN010349

PATIENT
  Age: 73 Year
  Sex: Female

DRUGS (3)
  1. LAGEVRIO [Suspect]
     Active Substance: MOLNUPIRAVIR
     Indication: SARS-CoV-2 test positive
     Dosage: 40 CAPSULES/BOTTLE
     Dates: start: 202411, end: 202411
  2. VITAMINS NOS [Concomitant]
     Active Substance: VITAMINS
  3. LUTEIN [Concomitant]
     Active Substance: LUTEIN

REACTIONS (4)
  - Rash pruritic [Recovering/Resolving]
  - Dry mouth [Recovered/Resolved]
  - Dysgeusia [Recovered/Resolved]
  - Incorrect product administration duration [Unknown]

NARRATIVE: CASE EVENT DATE: 20241101
